FAERS Safety Report 17649540 (Version 1)
Quarter: 2020Q2

REPORT INFORMATION
  Report Type: Spontaneous
  Country: US (occurrence: US)
  Receive Date: 20200409
  Receipt Date: 20200409
  Transmission Date: 20200713
  Serious: Yes (Other)
  Sender: FDA-Public Use
  Company Number: US-SUN PHARMACEUTICAL INDUSTRIES LTD-2020R1-242620

PATIENT
  Age: 21 Year
  Sex: Female

DRUGS (2)
  1. ECULIZUMAB [Concomitant]
     Active Substance: ECULIZUMAB
     Indication: ATYPICAL HAEMOLYTIC URAEMIC SYNDROME
     Dosage: UNK
     Route: 065
  2. CLINDAMYCIN. [Suspect]
     Active Substance: CLINDAMYCIN
     Indication: PARONYCHIA
     Dosage: UNK
     Route: 048

REACTIONS (4)
  - Herpes simplex [Unknown]
  - Drug ineffective [Unknown]
  - Drug resistance [Unknown]
  - Condition aggravated [Unknown]
